FAERS Safety Report 6730685-6 (Version None)
Quarter: 2010Q2

REPORT INFORMATION
  Report Type: 
  Country: None (occurrence: None)
  Receive Date: 20100518
  Receipt Date: 20100514
  Transmission Date: 20101027
  Serious: Yes (Hospitalization, Disabling, Other)
  Sender: FDA-Public Use
  Company Number: US-MERCK-0901USA03024

PATIENT
  Age: 47 Year
  Sex: Female
  Weight: 47 kg

DRUGS (1)
  1. FOSAMAX [Suspect]
     Indication: OSTEOPOROSIS
     Route: 048
     Dates: end: 20050101

REACTIONS (30)
  - ALCOHOLISM [None]
  - ANXIETY [None]
  - ATAXIA [None]
  - BONE DISORDER [None]
  - DENTAL CARIES [None]
  - DEPRESSION [None]
  - ECZEMA [None]
  - EDENTULOUS [None]
  - FAECAL INCONTINENCE [None]
  - FALL [None]
  - FEELING ABNORMAL [None]
  - FIBULA FRACTURE [None]
  - FRACTURE [None]
  - HYPERLIPIDAEMIA [None]
  - HYPERTENSION [None]
  - HYPONATRAEMIA [None]
  - JOINT DISLOCATION [None]
  - JOINT INJURY [None]
  - NEURODEGENERATIVE DISORDER [None]
  - NORMOCHROMIC NORMOCYTIC ANAEMIA [None]
  - OSTEOMYELITIS [None]
  - OSTEONECROSIS OF JAW [None]
  - PARKINSON'S DISEASE [None]
  - RESTLESS LEGS SYNDROME [None]
  - TIBIA FRACTURE [None]
  - TONGUE DISCOLOURATION [None]
  - TOOTH EROSION [None]
  - TRANSAMINASES INCREASED [None]
  - TRISMUS [None]
  - URINARY INCONTINENCE [None]
